FAERS Safety Report 21928757 (Version 6)
Quarter: 2023Q2

REPORT INFORMATION
  Report Type: Report from Study
  Country: AR (occurrence: AR)
  Receive Date: 20230131
  Receipt Date: 20230627
  Transmission Date: 20230722
  Serious: Yes (Hospitalization, Other)
  Sender: FDA-Public Use
  Company Number: AR-002147023-NVSC2023AR017609

PATIENT
  Age: 27 Year
  Sex: Male

DRUGS (9)
  1. RYDAPT [Suspect]
     Active Substance: MIDOSTAURIN
     Indication: Acute myeloid leukaemia
     Dosage: 100 MG, QD (START DATE 29 JAN)
     Route: 065
  2. RYDAPT [Suspect]
     Active Substance: MIDOSTAURIN
     Indication: Chronic myeloid leukaemia
     Dosage: 100 MG, QD (2 DOSES OF 50MG) (2 DOSES DAILY, 50MG EVERY TWELVE HOURS)
     Route: 048
     Dates: start: 20230109
  3. RYDAPT [Suspect]
     Active Substance: MIDOSTAURIN
     Dosage: 100 MG, QD (2 DOSES OF 50MG)
     Route: 048
     Dates: start: 20230209
  4. RYDAPT [Suspect]
     Active Substance: MIDOSTAURIN
     Dosage: UNK
     Route: 065
     Dates: start: 20230309
  5. ONDANSETRON [Concomitant]
     Active Substance: ONDANSETRON
     Indication: Antiemetic supportive care
     Dosage: UNK
     Route: 040
     Dates: start: 20230223
  6. CYTARABINE [Concomitant]
     Active Substance: CYTARABINE
     Indication: Product used for unknown indication
     Dosage: UNK
     Route: 065
  7. CARVEDILOL [Concomitant]
     Active Substance: CARVEDILOL
     Indication: Product used for unknown indication
     Dosage: UNK
     Route: 065
  8. ENALAPRIL [Concomitant]
     Active Substance: ENALAPRIL
     Indication: Product used for unknown indication
     Dosage: UNK
     Route: 065
  9. COLCHICINE [Concomitant]
     Active Substance: COLCHICINE
     Indication: Product used for unknown indication
     Dosage: UNK
     Route: 065

REACTIONS (12)
  - Myopericarditis [Recovering/Resolving]
  - Cardiac dysfunction [Unknown]
  - Cardiac failure [Unknown]
  - Cardiomegaly [Unknown]
  - Pulmonary oedema [Recovered/Resolved]
  - Headache [Unknown]
  - Pulmonary oedema [Unknown]
  - Decreased immune responsiveness [Unknown]
  - Pericardial effusion [Unknown]
  - Cough [Unknown]
  - Pyrexia [Unknown]
  - Inappropriate schedule of product administration [Unknown]

NARRATIVE: CASE EVENT DATE: 20230223
